FAERS Safety Report 16740365 (Version 2)
Quarter: 2020Q1

REPORT INFORMATION
  Report Type: Spontaneous
  Country: CA (occurrence: CA)
  Receive Date: 20190826
  Receipt Date: 20200214
  Transmission Date: 20200409
  Serious: Yes (Other)
  Sender: FDA-Public Use
  Company Number: CA-BAYER-2019-149923

PATIENT
  Age: 57 Year
  Sex: Female

DRUGS (10)
  1. CIPRO [Suspect]
     Active Substance: CIPROFLOXACIN HYDROCHLORIDE
     Dosage: 500 MG, BID
     Dates: start: 201903
  2. AZITHROMYCIN ANHYDROUS. [Suspect]
     Active Substance: AZITHROMYCIN ANHYDROUS
     Dosage: UNK
  3. CYANOCOBALAMIN. [Concomitant]
     Active Substance: CYANOCOBALAMIN
     Dosage: 1000 MCG/ML VIAL
  4. VANCOMYCIN [Suspect]
     Active Substance: VANCOMYCIN
     Dosage: UNK UNK, BID
  5. METHOTREXATE. [Suspect]
     Active Substance: METHOTREXATE
     Dosage: 2.5 MG 8 TABLETS WEEKLY ON SATURDAYS
     Route: 048
     Dates: start: 201907
  6. VITAMIN B12 [Suspect]
     Active Substance: CYANOCOBALAMIN
     Dosage: 1000 MCG/ML VIAL
  7. FLAGYL [METRONIDAZOLE BENZOATE] [Concomitant]
     Active Substance: METRONIDAZOLE BENZOATE
     Dosage: 500MG PO BID - LOE
     Route: 048
     Dates: start: 201903
  8. INFLECTRA [Suspect]
     Active Substance: INFLIXIMAB-DYYB
     Indication: CROHN^S DISEASE
     Dosage: 5 MG/KG AT 0, 2, 6 WEEKS, THEN EVERY 8 WEEKS
     Route: 042
     Dates: start: 20190807
  9. FOLIC ACID. [Concomitant]
     Active Substance: FOLIC ACID
     Dosage: 5MG 6 TIMES PER WEEK
     Dates: start: 201907
  10. OXYCODONE [Concomitant]
     Active Substance: OXYCODONE
     Indication: PAIN
     Dosage: UNK

REACTIONS (14)
  - Stent placement [None]
  - Nausea [None]
  - Discomfort [None]
  - Large intestinal ulcer [None]
  - Female genital tract fistula [None]
  - Vaginal haemorrhage [Not Recovered/Not Resolved]
  - Vaginal flatulence [None]
  - Lithotripsy [None]
  - Nephrolithiasis [None]
  - Haemorrhoids [None]
  - Pain [Not Recovered/Not Resolved]
  - Loss of personal independence in daily activities [None]
  - Vaginal discharge [Not Recovered/Not Resolved]
  - Diverticulum intestinal [None]

NARRATIVE: CASE EVENT DATE: 20190702
